FAERS Safety Report 9908493 (Version 1)
Quarter: 2014Q1

REPORT INFORMATION
  Report Type: Spontaneous
  Country: US (occurrence: None)
  Receive Date: 20140214
  Receipt Date: 20140214
  Transmission Date: 20141002
  Serious: Yes (Hospitalization)
  Sender: FDA-Public Use
  Company Number: None

PATIENT
  Age: 81 Year
  Sex: Female
  Weight: 55.4 kg

DRUGS (12)
  1. ALTEPLASE [Suspect]
     Indication: CEREBROVASCULAR ACCIDENT
     Dosage: RECENT?45.9MG?ONCE?IVPB
  2. ALTEPLASE [Suspect]
     Indication: CEREBROVASCULAR ACCIDENT
     Dosage: RECENT
     Route: 042
  3. RECLAST [Suspect]
  4. HYDOXYCHLOROQUINE [Concomitant]
  5. FOLIC ACID [Concomitant]
  6. METHOTREXATE [Concomitant]
  7. ASA [Concomitant]
  8. ARICEPT [Concomitant]
  9. CA+D [Concomitant]
  10. CYANOCOBALAMIN [Concomitant]
  11. CHOLECACLCIFEROL [Concomitant]
  12. PHENYLEPHRIN [Concomitant]

REACTIONS (1)
  - Cerebral haemorrhage [None]
